FAERS Safety Report 6924339-0 (Version None)
Quarter: 2010Q3

REPORT INFORMATION
  Report Type: 
  Country: None (occurrence: None)
  Receive Date: 20100811
  Receipt Date: 20100811
  Transmission Date: 20110219
  Serious: Yes (Other)
  Sender: FDA-Public Use
  Company Number: None

PATIENT
  Sex: Female

DRUGS (2)
  1. CRESTOR [Suspect]
  2. SIMVASTATIN [Suspect]

REACTIONS (2)
  - HEADACHE [None]
  - MYALGIA [None]
